FAERS Safety Report 4359577-7 (Version None)
Quarter: 2004Q2

REPORT INFORMATION
  Report Type: 
  Country: None (occurrence: None)
  Receive Date: 20040512
  Receipt Date: 20040311
  Transmission Date: 20050107
  Serious: Yes (Hospitalization)
  Sender: FDA-Public Use
  Company Number: AU_040207434

PATIENT
  Age: 30 Year
  Sex: Female
  Weight: 65 kg

DRUGS (14)
  1. XIGRIS [Suspect]
     Indication: SEPTIC SHOCK
     Dosage: 25 UG/KG/HR
     Dates: start: 20030828, end: 20030901
  2. VANCOMYCIN [Concomitant]
  3. CIPROFLOXACIN [Concomitant]
  4. HEPARIN [Concomitant]
  5. CERNEVIT-12 [Concomitant]
  6. NORADRENALINE [Concomitant]
  7. ONDANSETRON [Concomitant]
  8. MAGNESIUM SULFATE [Concomitant]
  9. FOLIC ACID [Concomitant]
  10. POTASSIUM CHLORIDE [Concomitant]
  11. FUROSEMIDE [Concomitant]
  12. OMEPRAZOLE [Concomitant]
  13. VECURONIUM BROMIDE [Concomitant]
  14. THAIMINE [Concomitant]

REACTIONS (5)
  - CAESAREAN SECTION [None]
  - MATERNAL DRUGS AFFECTING FOETUS [None]
  - PREMATURE BABY [None]
  - PREMATURE LABOUR [None]
  - SMALL FOR DATES BABY [None]
